FAERS Safety Report 6443251-7 (Version None)
Quarter: 2009Q4

REPORT INFORMATION
  Report Type: 
  Country: None (occurrence: None)
  Receive Date: 20091113
  Receipt Date: 20091104
  Transmission Date: 20100525
  Serious: Yes (Other)
  Sender: FDA-Public Use
  Company Number: 2009AC000362

PATIENT
  Age: 75 Year
  Sex: Female

DRUGS (13)
  1. DIGOXIN [Suspect]
     Dosage: 0.25 MG; PO
     Route: 048
  2. MECLIZINE [Concomitant]
  3. ALLOPURINOL [Concomitant]
  4. SYNTHROID [Concomitant]
  5. POTASSIUM CHLORIDE [Concomitant]
  6. NEURONTIN [Concomitant]
  7. QUININE [Concomitant]
  8. RANITIDINE [Concomitant]
  9. NAPROXEN [Concomitant]
  10. XENICAL [Concomitant]
  11. AMITRIPTYLINE [Concomitant]
  12. FUROSEMIDE [Concomitant]
  13. PREMARIN [Concomitant]

REACTIONS (7)
  - ANXIETY [None]
  - ARTHRITIS [None]
  - BRONCHITIS [None]
  - ECONOMIC PROBLEM [None]
  - INJURY [None]
  - PAIN [None]
  - UPPER RESPIRATORY TRACT INFECTION [None]
